FAERS Safety Report 10215599 (Version 1)
Quarter: 2014Q2

REPORT INFORMATION
  Report Type: Spontaneous
  Country: US (occurrence: US)
  Receive Date: 20140604
  Receipt Date: 20140604
  Transmission Date: 20141212
  Serious: No
  Sender: FDA-Public Use
  Company Number: US-B.I. PHARMACEUTICALS,INC./RIDGEFIELD-2014-BI-22911BP

PATIENT
  Sex: Female
  Weight: 63 kg

DRUGS (3)
  1. MIRAPEX [Suspect]
     Indication: PARKINSON^S DISEASE
     Dosage: 0.75 MG
     Route: 048
     Dates: start: 201312, end: 201312
  2. MIRAPEX [Suspect]
     Dosage: 1.5 MG
     Route: 048
     Dates: start: 201312, end: 201405
  3. MIRAPEX [Suspect]
     Dosage: 3 MG
     Route: 048
     Dates: start: 201405

REACTIONS (3)
  - Feeling abnormal [Not Recovered/Not Resolved]
  - Tremor [Not Recovered/Not Resolved]
  - Increased appetite [Not Recovered/Not Resolved]
